FAERS Safety Report 6752529-9 (Version None)
Quarter: 2010Q2

REPORT INFORMATION
  Report Type: 
  Country: None (occurrence: None)
  Receive Date: 20100602
  Receipt Date: 20100525
  Transmission Date: 20101027
  Serious: Yes (Hospitalization, Congenital Anomaly)
  Sender: FDA-Public Use
  Company Number: DE-WYE-G05800810

PATIENT
  Sex: Male
  Weight: 3.81 kg

DRUGS (2)
  1. TREVILOR RETARD [Suspect]
     Indication: DEPRESSION
     Route: 064
     Dates: start: 20071101, end: 20090101
  2. TREVILOR RETARD [Suspect]
     Dosage: REDUCED TO 75 MG PER DAY
     Route: 064
     Dates: start: 20090101, end: 20091001

REACTIONS (3)
  - CONGENITAL INGUINAL HERNIA [None]
  - FOETAL HEART RATE ABNORMAL [None]
  - VOMITING [None]
